FAERS Safety Report 11618980 (Version 1)
Quarter: 2015Q4

REPORT INFORMATION
  Report Type: Report from Study
  Country: CA (occurrence: CA)
  Receive Date: 20151012
  Receipt Date: 20151012
  Transmission Date: 20160304
  Serious: Yes (Hospitalization, Other)
  Sender: FDA-Public Use
  Company Number: PHHY2015CA040258

PATIENT
  Age: 73 Year
  Sex: Female

DRUGS (3)
  1. SANDOSTATIN [Suspect]
     Active Substance: OCTREOTIDE ACETATE
     Indication: GASTROINTESTINAL VASCULAR MALFORMATION
     Dosage: 50 UG, BID
     Route: 065
     Dates: end: 20140815
  2. BISOPROLOL [Concomitant]
     Active Substance: BISOPROLOL
     Indication: PRODUCT USED FOR UNKNOWN INDICATION
     Route: 065
  3. SANDOSTATIN LAR DEPOT [Suspect]
     Active Substance: OCTREOTIDE ACETATE
     Indication: GASTROINTESTINAL VASCULAR MALFORMATION
     Dosage: 10 MG, QMO
     Route: 030
     Dates: start: 20140820

REACTIONS (5)
  - Blood pressure systolic increased [Unknown]
  - Constipation [Unknown]
  - Fall [Unknown]
  - Hip fracture [Unknown]
  - Off label use [Unknown]

NARRATIVE: CASE EVENT DATE: 20150331
